FAERS Safety Report 9537687 (Version 2)
Quarter: 2013Q3

REPORT INFORMATION
  Report Type: Spontaneous
  Country: US (occurrence: US)
  Receive Date: 20130919
  Receipt Date: 20130919
  Transmission Date: 20140515
  Serious: Yes (Other)
  Sender: FDA-Public Use
  Company Number: US-US-EMD SERONO, INC.-234630K09USA

PATIENT
  Age: 51 Year
  Sex: Female

DRUGS (5)
  1. REBIF [Suspect]
     Indication: MULTIPLE SCLEROSIS
     Route: 058
     Dates: start: 20070903
  2. BUPROPION [Concomitant]
     Indication: FATIGUE
     Dates: start: 2008
  3. DETROL                             /01350201/ [Concomitant]
     Indication: STRESS URINARY INCONTINENCE
  4. NEXIUM                             /01479302/ [Concomitant]
     Indication: HIATUS HERNIA
  5. FLUOXETINE [Concomitant]
     Indication: DEPRESSION

REACTIONS (1)
  - Breast cancer [Recovered/Resolved]
